FAERS Safety Report 5054851-3 (Version None)
Quarter: 2006Q3

REPORT INFORMATION
  Report Type: 
  Country: None (occurrence: None)
  Receive Date: 20060717
  Receipt Date: 20060703
  Transmission Date: 20061208
  Serious: Yes (Hospitalization)
  Sender: FDA-Public Use
  Company Number: 2006082967

PATIENT
  Age: 45 Year
  Sex: Male

DRUGS (3)
  1. GEODON [Suspect]
     Indication: SCHIZOPHRENIA
  2. KLONOPIN [Concomitant]
  3. SSRI [Concomitant]

REACTIONS (5)
  - BLOOD CREATINE PHOSPHOKINASE INCREASED [None]
  - BLOOD PRESSURE INCREASED [None]
  - BODY TEMPERATURE INCREASED [None]
  - DYSTONIA [None]
  - MUSCLE RIGIDITY [None]
